FAERS Safety Report 23327622 (Version 1)
Quarter: 2023Q4

REPORT INFORMATION
  Report Type: Spontaneous
  Country: US (occurrence: US)
  Receive Date: 20231221
  Receipt Date: 20231221
  Transmission Date: 20240109
  Serious: No
  Sender: FDA-Public Use
  Company Number: US-002147023-NVSC2023US271081

PATIENT
  Sex: Female

DRUGS (2)
  1. TRILEPTAL [Suspect]
     Active Substance: OXCARBAZEPINE
     Indication: Temporal lobe epilepsy
     Dosage: 450 MG, BID
     Route: 065
     Dates: start: 20231202
  2. KEPPRA [Suspect]
     Active Substance: LEVETIRACETAM
     Indication: Temporal lobe epilepsy
     Dosage: UNK
     Route: 065

REACTIONS (5)
  - Flushing [Unknown]
  - Erythema [Unknown]
  - Dyspnoea [Unknown]
  - Lymphadenopathy [Unknown]
  - Pyrexia [Unknown]
